FAERS Safety Report 17916633 (Version 1)
Quarter: 2020Q2

REPORT INFORMATION
  Report Type: Spontaneous
  Country: US (occurrence: US)
  Receive Date: 20200619
  Receipt Date: 20200619
  Transmission Date: 20200714
  Serious: No
  Sender: FDA-Public Use
  Company Number: None

PATIENT
  Age: 54 Year
  Sex: Female
  Weight: 78.4 kg

DRUGS (13)
  1. REMDESIVIR. [Suspect]
     Active Substance: REMDESIVIR
     Indication: COVID-19 PNEUMONIA
     Route: 041
     Dates: start: 20200617, end: 20200618
  2. ALBUTEROL HFA [Concomitant]
     Active Substance: ALBUTEROL SULFATE
     Dates: start: 20200617
  3. BENZONATATE 100 MG [Concomitant]
     Active Substance: BENZONATATE
     Dates: start: 20200617
  4. METFORMIN [Concomitant]
     Active Substance: METFORMIN HYDROCHLORIDE
     Dates: start: 20200617, end: 20200617
  5. ENOXAPARIN 40 MG [Concomitant]
     Active Substance: ENOXAPARIN
     Dates: start: 20200617
  6. TOCILIZUMAB 400 MG [Concomitant]
     Dates: start: 20200618, end: 20200618
  7. DEXTROMETHORPHAN-GUAIFENESIN 10-100 [Concomitant]
     Dates: start: 20200617
  8. OXYMETAZOLINE NASAL SPRAY [Concomitant]
     Active Substance: OXYMETAZOLINE
     Dates: start: 20200618
  9. LEVOTHYROXINE 75 MCG [Concomitant]
     Active Substance: LEVOTHYROXINE
     Dates: start: 20200617
  10. ZINC SULFATE 220 MG [Concomitant]
     Dates: start: 20200617
  11. ACETAMINOPHEN. [Concomitant]
     Active Substance: ACETAMINOPHEN
     Dates: start: 20200617
  12. ASCORBIC ACID 500 MG [Concomitant]
     Dates: start: 20200617
  13. INSULIN LISPRO [Concomitant]
     Active Substance: INSULIN LISPRO
     Dates: start: 20200617

REACTIONS (1)
  - Transaminases increased [None]

NARRATIVE: CASE EVENT DATE: 20200617
